FAERS Safety Report 19373743 (Version 1)
Quarter: 2021Q2

REPORT INFORMATION
  Report Type: Other
  Country: CA (occurrence: CA)
  Receive Date: 20210603
  Receipt Date: 20210603
  Transmission Date: 20210717
  Serious: No
  Sender: FDA-Public Use
  Company Number: CA-ROCHE-2839618

PATIENT
  Age: 37 Year
  Sex: Female

DRUGS (2)
  1. PFIZER?BIONTECH COVID?19 VACCINE [Suspect]
     Active Substance: TOZINAMERAN
     Indication: COVID-19
     Route: 065
     Dates: start: 20210519
  2. OCREVUS [Suspect]
     Active Substance: OCRELIZUMAB
     Indication: RELAPSING-REMITTING MULTIPLE SCLEROSIS
     Dosage: 300 MG AT DAY 0 AND 14, THEN 600 MG EVERY 6 MONTH
     Route: 042
     Dates: start: 20180626

REACTIONS (6)
  - Pain in extremity [Recovering/Resolving]
  - Gait disturbance [Recovered/Resolved]
  - Feeling hot [Recovered/Resolved]
  - COVID-19 [Recovered/Resolved]
  - Urinary incontinence [Recovered/Resolved]
  - Peripheral swelling [Recovered/Resolved]

NARRATIVE: CASE EVENT DATE: 20210519
